FAERS Safety Report 4513438-9 (Version None)
Quarter: 2004Q4

REPORT INFORMATION
  Report Type: 
  Country: None (occurrence: None)
  Receive Date: 20041130
  Receipt Date: 20041008
  Transmission Date: 20050328
  Serious: Yes (Other)
  Sender: FDA-Public Use
  Company Number: US-BRISTOL-MYERS SQUIBB COMPANY-12727376

PATIENT
  Age: 7 Decade
  Sex: Female

DRUGS (4)
  1. ERBITUX [Suspect]
     Indication: COLORECTAL CANCER METASTATIC
     Dosage: LOADING DOSE, STOPPED FOR 30 MINUTES, RESUMED + INFUSION COMPLETED
     Dates: start: 20041005, end: 20041005
  2. DECADRON [Concomitant]
     Indication: PREMEDICATION
     Route: 042
     Dates: start: 20041005, end: 20041005
  3. PEPCID [Concomitant]
     Indication: PREMEDICATION
     Dates: start: 20041005, end: 20041005
  4. BENADRYL [Concomitant]
     Indication: PREMEDICATION
     Route: 042
     Dates: start: 20041005, end: 20041005

REACTIONS (3)
  - BLOOD PRESSURE DECREASED [None]
  - DYSPNOEA [None]
  - RASH [None]
